FAERS Safety Report 18107648 (Version 2)
Quarter: 2020Q3

REPORT INFORMATION
  Report Type: Spontaneous
  Country: JP (occurrence: JP)
  Receive Date: 20200804
  Receipt Date: 20200828
  Transmission Date: 20201103
  Serious: Yes (Hospitalization, Other)
  Sender: FDA-Public Use
  Company Number: JP-PFIZER INC-2020291541

PATIENT
  Age: 74 Year
  Sex: Female
  Weight: 50 kg

DRUGS (2)
  1. VIZIMPRO [Suspect]
     Active Substance: DACOMITINIB
     Indication: NON-SMALL CELL LUNG CANCER
     Dosage: 30 MG, 1X/DAY
     Route: 048
     Dates: start: 20191023, end: 20191101
  2. VIZIMPRO [Suspect]
     Active Substance: DACOMITINIB
     Dosage: 15 MG, 1X/DAY
     Route: 048
     Dates: start: 20191102, end: 20200305

REACTIONS (3)
  - Second primary malignancy [Recovering/Resolving]
  - Neoplasm progression [Unknown]
  - Small cell lung cancer [Recovering/Resolving]

NARRATIVE: CASE EVENT DATE: 20200212
